FAERS Safety Report 20834693 (Version 1)
Quarter: 2022Q2

REPORT INFORMATION
  Report Type: Spontaneous
  Country: GB (occurrence: GB)
  Receive Date: 20220516
  Receipt Date: 20220516
  Transmission Date: 20220721
  Serious: Yes (Hospitalization, Other)
  Sender: FDA-Public Use
  Company Number: GB-NOVARTISPH-NVSC2022GB110258

PATIENT
  Age: 73 Year
  Sex: Female
  Weight: 72 kg

DRUGS (16)
  1. ALLOPURINOL [Suspect]
     Active Substance: ALLOPURINOL
     Indication: Plasma cell myeloma
     Dosage: 3 MG, QD, 33D (3 MILLIGRAM)
     Route: 048
     Dates: start: 20160223, end: 20160321
  2. ALLOPURINOL [Suspect]
     Active Substance: ALLOPURINOL
     Indication: Prophylaxis
     Dosage: 40 MG, QW, 33D
     Route: 065
     Dates: start: 20160315
  3. ALLOPURINOL [Suspect]
     Active Substance: ALLOPURINOL
     Dosage: 200 MG, QD, 33 D
     Route: 065
     Dates: start: 20160223
  4. ALLOPURINOL [Suspect]
     Active Substance: ALLOPURINOL
     Dosage: 40 MG, QD 32D
     Route: 065
     Dates: start: 20160223, end: 20160228
  5. DEXAMETHASONE [Suspect]
     Active Substance: DEXAMETHASONE
     Indication: Plasma cell myeloma
     Dosage: 40 MG
     Route: 048
     Dates: start: 20160315
  6. DEXAMETHASONE [Suspect]
     Active Substance: DEXAMETHASONE
     Dosage: 40 MG, (5.7143 MILLIGRAM)
     Route: 048
     Dates: start: 20160223, end: 20160302
  7. DEXAMETHASONE [Suspect]
     Active Substance: DEXAMETHASONE
     Dosage: 40 MG, 42 D (5.7143 MILLIGRAM)
     Route: 048
     Dates: start: 20160223, end: 20160315
  8. DEXAMETHASONE [Suspect]
     Active Substance: DEXAMETHASONE
     Dosage: 5.714 MG
     Route: 048
     Dates: start: 20160223
  9. POMALIDOMIDE [Suspect]
     Active Substance: POMALIDOMIDE
     Indication: Plasma cell myeloma
     Dosage: 84 MG, 28D, (3 MILLIGRAM)
     Route: 048
     Dates: start: 20160223, end: 20160228
  10. POMALIDOMIDE [Suspect]
     Active Substance: POMALIDOMIDE
     Dosage: 84 MG, 28D, (3 MILLIGRAM)
     Route: 048
     Dates: start: 20160223, end: 20160321
  11. POMALIDOMIDE [Suspect]
     Active Substance: POMALIDOMIDE
     Dosage: 4 MG, 28D (3 MILLIGRAM, ALSO RECEIVED ON 28-FEB-2016; ALSO RECEIVED 4 MG)
     Route: 048
     Dates: start: 20160223, end: 20160321
  12. POMALIDOMIDE [Suspect]
     Active Substance: POMALIDOMIDE
     Dosage: 63 MG, 28D, (3MG)
     Route: 048
     Dates: start: 20160223, end: 20160315
  13. POMALIDOMIDE [Suspect]
     Active Substance: POMALIDOMIDE
     Dosage: 84 MG, 28D ((3 MILLIGRAM), DURATION- 21 DAYS)
     Route: 048
     Dates: start: 20160223, end: 20160315
  14. LENALIDOMIDE [Suspect]
     Active Substance: LENALIDOMIDE
     Indication: Prophylaxis
     Dosage: 200 MG, QD
     Route: 048
     Dates: start: 20160223
  15. DALTEPARIN [Concomitant]
     Active Substance: DALTEPARIN
     Indication: Anticoagulant therapy
     Dosage: 5000 IU
     Route: 065
     Dates: start: 20160223, end: 20160302
  16. OMEPRAZOLE [Concomitant]
     Active Substance: OMEPRAZOLE
     Indication: Product used for unknown indication
     Dosage: 20 MG, QD
     Route: 048
     Dates: start: 20160223

REACTIONS (3)
  - Acute kidney injury [Recovered/Resolved]
  - Thrombocytopenia [Recovered/Resolved]
  - Rash [Recovered/Resolved]

NARRATIVE: CASE EVENT DATE: 20160301
